FAERS Safety Report 19798093 (Version 1)
Quarter: 2021Q3

REPORT INFORMATION
  Report Type: Spontaneous
  Country: GB (occurrence: GB)
  Receive Date: 20210907
  Receipt Date: 20210907
  Transmission Date: 20211014
  Serious: Yes (Death, Life-Threatening, Hospitalization, Other)
  Sender: FDA-Public Use
  Company Number: GB-AMGEN-GBRSP2021135627

PATIENT
  Age: 61 Year
  Sex: Male
  Weight: 85 kg

DRUGS (1)
  1. AMGEVITA [Suspect]
     Active Substance: ADALIMUMAB
     Indication: PSORIASIS
     Dosage: 40 MILLIGRAM, Q2WK
     Route: 065
     Dates: start: 20190208, end: 20210706

REACTIONS (5)
  - Suicide attempt [Recovered/Resolved]
  - Intentional overdose [Recovered/Resolved]
  - Hepatitis alcoholic [Fatal]
  - Acute kidney injury [Fatal]
  - Syncope [Recovered/Resolved]

NARRATIVE: CASE EVENT DATE: 20210518
